FAERS Safety Report 8035582-4 (Version None)
Quarter: 2012Q1

REPORT INFORMATION
  Report Type: 
  Country: None (occurrence: None)
  Receive Date: 20120110
  Receipt Date: 20120110
  Transmission Date: 20120608
  Serious: No
  Sender: FDA-Public Use
  Company Number: None

PATIENT
  Sex: Female
  Weight: 60.782 kg

DRUGS (1)
  1. SINEMET [Suspect]
     Indication: PARKINSON'S DISEASE
     Dosage: SINCE MARCH 11
     Dates: start: 20110301

REACTIONS (10)
  - NAUSEA [None]
  - ASTHENIA [None]
  - VOMITING [None]
  - PRODUCT SUBSTITUTION ISSUE [None]
  - DEPRESSION [None]
  - DECREASED APPETITE [None]
  - INSOMNIA [None]
  - DRUG EFFECT DECREASED [None]
  - ABDOMINAL PAIN UPPER [None]
  - DECREASED ACTIVITY [None]
